FAERS Safety Report 17154445 (Version 1)
Quarter: 2019Q4

REPORT INFORMATION
  Report Type: Spontaneous
  Country: GB (occurrence: GB)
  Receive Date: 20191213
  Receipt Date: 20191213
  Transmission Date: 20200122
  Serious: Yes (Other)
  Sender: FDA-Public Use
  Company Number: GB-BAXTER-2019BAX025058

PATIENT
  Sex: Male

DRUGS (4)
  1. SODIUM CHLORIDE INTRAVENOUS INFUSION BP 0.9% W/V [Suspect]
     Active Substance: SODIUM CHLORIDE
     Indication: MEDICATION DILUTION
     Route: 065
     Dates: start: 20191128
  2. INFLECTRA [Suspect]
     Active Substance: INFLIXIMAB-DYYB
     Indication: PRODUCT USED FOR UNKNOWN INDICATION
     Route: 065
     Dates: start: 2017
  3. WATER FOR INJECTION [Suspect]
     Active Substance: WATER
     Indication: MEDICATION DILUTION
     Route: 065
     Dates: start: 20191128
  4. INFLECTRA [Suspect]
     Active Substance: INFLIXIMAB-DYYB
     Route: 065
     Dates: start: 20191128

REACTIONS (1)
  - Malaise [Unknown]
